FAERS Safety Report 13825779 (Version 1)
Quarter: 2017Q3

REPORT INFORMATION
  Report Type: Report from Study
  Country: JP (occurrence: JP)
  Receive Date: 20170802
  Receipt Date: 20170802
  Transmission Date: 20171127
  Serious: Yes (Death)
  Sender: FDA-Public Use
  Company Number: JP-ACTELION-A-US2017-157534

PATIENT
  Sex: Male

DRUGS (1)
  1. VENTAVIS [Suspect]
     Active Substance: ILOPROST
     Indication: PULMONARY ARTERIAL HYPERTENSION
     Dosage: UNK, 6/D
     Route: 055
     Dates: end: 20170727

REACTIONS (3)
  - Vomiting [Unknown]
  - Diarrhoea [Unknown]
  - Sudden death [Fatal]

NARRATIVE: CASE EVENT DATE: 20170727
